FAERS Safety Report 19564351 (Version 3)
Quarter: 2021Q3

REPORT INFORMATION
  Report Type: Spontaneous
  Country: US (occurrence: US)
  Receive Date: 20210716
  Receipt Date: 20210915
  Transmission Date: 20211014
  Serious: No
  Sender: FDA-Public Use
  Company Number: US-PFIZER INC-2021738633

PATIENT
  Age: 14 Year
  Sex: Female
  Weight: 36.74 kg

DRUGS (2)
  1. GENOTROPIN [Suspect]
     Active Substance: SOMATROPIN
     Dosage: UNK
  2. GENOTROPIN [Suspect]
     Active Substance: SOMATROPIN
     Indication: FAILURE TO THRIVE
     Dosage: 1.4 MG, DAILY (NIGHTLY)

REACTIONS (5)
  - Intentional device misuse [Unknown]
  - Drug dose omission by device [Not Recovered/Not Resolved]
  - Device breakage [Unknown]
  - Off label use [Unknown]
  - Device use error [Unknown]

NARRATIVE: CASE EVENT DATE: 20210616
